FAERS Safety Report 20256723 (Version 1)
Quarter: 2021Q4

REPORT INFORMATION
  Report Type: Spontaneous
  Country: US (occurrence: US)
  Receive Date: 20211230
  Receipt Date: 20211230
  Transmission Date: 20220303
  Serious: Yes (Other)
  Sender: FDA-Public Use
  Company Number: US-PURDUE-USA-2020-0232446

PATIENT
  Sex: Male

DRUGS (11)
  1. OXYCONTIN [Suspect]
     Active Substance: OXYCODONE HYDROCHLORIDE
     Indication: Back injury
     Dosage: UNKNOWN
     Route: 048
  2. HYDROCODONE BITARTRATE AND ACETAMINOPHEN [Suspect]
     Active Substance: ACETAMINOPHEN\HYDROCODONE BITARTRATE
     Indication: Back injury
     Dosage: UNKNOWN
     Route: 048
  3. OXYCODONE HYDROCHLORIDE [Suspect]
     Active Substance: OXYCODONE HYDROCHLORIDE
     Indication: Back injury
     Dosage: UNKNOWN
     Route: 048
  4. HYSINGLA ER [Suspect]
     Active Substance: HYDROCODONE BITARTRATE
     Indication: Back injury
     Dosage: UNKNOWN
     Route: 048
  5. HYDROMORPHONE HYDROCHLORIDE [Suspect]
     Active Substance: HYDROMORPHONE HYDROCHLORIDE
     Indication: Back injury
     Dosage: UNKNOWN
     Route: 048
  6. OXYCODONE [Suspect]
     Active Substance: OXYCODONE
     Indication: Back injury
     Dosage: UNKNOWN
     Route: 048
  7. MORPHINE SULFATE [Suspect]
     Active Substance: MORPHINE SULFATE
     Indication: Back injury
     Dosage: UNKNOWN
     Route: 048
  8. PALLADONE [Suspect]
     Active Substance: HYDROMORPHONE HYDROCHLORIDE
     Indication: Back injury
     Dosage: UNKNOWN
     Route: 048
  9. DHC PLUS [Suspect]
     Active Substance: ACETAMINOPHEN\CAFFEINE\DIHYDROCODEINE BITARTRATE
     Indication: Back injury
     Dosage: UNKNOWN
     Route: 048
  10. TRAMADOL [Suspect]
     Active Substance: TRAMADOL
     Indication: Back injury
     Dosage: UNKNOWN
     Route: 048
  11. HEROIN [Suspect]
     Active Substance: DIAMORPHINE
     Indication: Back injury
     Dosage: UNKNOWN
     Route: 065

REACTIONS (2)
  - Overdose [Unknown]
  - Drug dependence [Unknown]
